FAERS Safety Report 24313322 (Version 1)
Quarter: 2024Q3

REPORT INFORMATION
  Report Type: Spontaneous
  Country: US (occurrence: US)
  Receive Date: 20240912
  Receipt Date: 20240912
  Transmission Date: 20241017
  Serious: Yes (Hospitalization, Other)
  Sender: BRISTOL MYERS SQUIBB
  Company Number: US-BRISTOL-MYERS SQUIBB COMPANY-2024-143489

PATIENT
  Age: 69 Year
  Sex: Male

DRUGS (1)
  1. REVLIMID [Suspect]
     Active Substance: LENALIDOMIDE
     Indication: Anaemia vitamin B12 deficiency
     Route: 048

REACTIONS (3)
  - Pneumonia [Unknown]
  - Respiratory tract infection viral [Unknown]
  - Off label use [Unknown]

NARRATIVE: CASE EVENT DATE: 20240801
